FAERS Safety Report 9507344 (Version 1)
Quarter: 2013Q3

REPORT INFORMATION
  Report Type: Spontaneous
  Country: CH (occurrence: CH)
  Receive Date: 20130909
  Receipt Date: 20130909
  Transmission Date: 20140515
  Serious: Yes (Hospitalization)
  Sender: FDA-Public Use
  Company Number: CH-PFIZER INC-2013255376

PATIENT
  Age: 74 Year
  Sex: Male

DRUGS (9)
  1. NORVASC [Suspect]
     Indication: MYOCARDIAL ISCHAEMIA
     Dosage: 1 DF, ONCE DAILY
  2. MARCOUMAR [Suspect]
     Indication: ATRIAL FIBRILLATION
     Dosage: 1.5 DF, ONCE DAILY
     Route: 048
     Dates: start: 2013, end: 20130814
  3. MARCOUMAR [Suspect]
     Indication: ATRIAL FLUTTER
  4. VOLTAREN EMULGEL [Suspect]
     Dosage: 1 DF, THREE TIMES DAILY
     Route: 061
     Dates: start: 2013, end: 201308
  5. CO-APROVEL [Concomitant]
  6. SORTIS [Concomitant]
     Dosage: UNK
  7. CONCOR [Concomitant]
     Dosage: UNK
  8. GLUCOPHAGE [Concomitant]
  9. TORASEM [Concomitant]
     Dosage: UNK

REACTIONS (11)
  - Incorrect dose administered [Recovered/Resolved]
  - International normalised ratio increased [Recovered/Resolved]
  - Gastrointestinal haemorrhage [Recovering/Resolving]
  - Melaena [Unknown]
  - Haemorrhagic anaemia [Recovering/Resolving]
  - C-reactive protein increased [Recovering/Resolving]
  - Gastritis erosive [Unknown]
  - Joint effusion [Recovering/Resolving]
  - Skin haemorrhage [Unknown]
  - Contusion [Unknown]
  - Fatigue [Unknown]
